FAERS Safety Report 6704941-1 (Version None)
Quarter: 2010Q2

REPORT INFORMATION
  Report Type: 
  Country: None (occurrence: None)
  Receive Date: 20100430
  Receipt Date: 20091209
  Transmission Date: 20101027
  Serious: No
  Sender: FDA-Public Use
  Company Number: US-ASTRAZENECA-2009SE31021

PATIENT
  Age: 63 Year
  Sex: Female

DRUGS (4)
  1. NEXIUM [Suspect]
     Route: 048
     Dates: start: 20040101
  2. SYNTHROID [Concomitant]
  3. BISTOLIC [Concomitant]
  4. TRANXENE [Concomitant]

REACTIONS (4)
  - ERUCTATION [None]
  - MALAISE [None]
  - PRODUCT TASTE ABNORMAL [None]
  - RETCHING [None]
